FAERS Safety Report 4897746-8 (Version None)
Quarter: 2006Q1

REPORT INFORMATION
  Report Type: 
  Country: None (occurrence: None)
  Receive Date: 20060130
  Receipt Date: 20060130
  Transmission Date: 20060701
  Serious: Yes (Life-Threatening, Hospitalization)
  Sender: FDA-Public Use
  Company Number: None

PATIENT
  Age: 41 Year
  Sex: Female
  Weight: 62.1428 kg

DRUGS (12)
  1. ERBITUX-CETUXIMAB- 100 MG-2 MG/ML IMCLONE SYSTEM/BRISTOL-MYERS SQUIB [Suspect]
     Indication: LUNG NEOPLASM MALIGNANT
     Dosage: 668 MG ONCE IV DRIP
     Route: 041
     Dates: start: 20060105, end: 20060105
  2. ERBITUX-CETUXIMAB- 100 MG-2 MG/ML IMCLONE SYSTEM/BRISTOL-MYERS SQUIB [Suspect]
     Indication: LUNG NEOPLASM MALIGNANT
     Dosage: 417.5 MG WEEKLY TIMES 3 IV DRIP
     Route: 041
     Dates: start: 20060112, end: 20060119
  3. PACLITAXEL [Concomitant]
  4. CARBOPLATIN [Concomitant]
  5. DIPHENHYDRAMINE [Concomitant]
  6. DEXAMETHASONE [Concomitant]
  7. CIMETIDINE [Concomitant]
  8. ACETAMINAPHEN [Concomitant]
  9. DECADRON PHOSPHATE [Concomitant]
  10. LOPID [Concomitant]
  11. IMODIUM [Concomitant]
  12. LOMOTIL [Concomitant]

REACTIONS (5)
  - BODY TEMPERATURE INCREASED [None]
  - DEHYDRATION [None]
  - DERMATITIS ACNEIFORM [None]
  - DIARRHOEA [None]
  - WHITE BLOOD CELL COUNT DECREASED [None]
